FAERS Safety Report 7278797-5 (Version None)
Quarter: 2010Q4

REPORT INFORMATION
  Report Type: 
  Country: None (occurrence: None)
  Receive Date: 20101201
  Receipt Date: 20100301
  Transmission Date: 20110411
  Serious: Yes (Other)
  Sender: FDA-Public Use
  Company Number: 10-000327

PATIENT
  Sex: Female

DRUGS (5)
  1. FEMHRT [Suspect]
     Indication: HORMONE THERAPY
     Dosage: 1MG/5MCG
  2. PREMARIN [Suspect]
  3. OGEN [Suspect]
  4. PROVERA [Suspect]
  5. MEDROXYPROGESTERONE [Suspect]

REACTIONS (1)
  - BREAST CANCER [None]
